FAERS Safety Report 8916290 (Version 1)
Quarter: 2012Q4

REPORT INFORMATION
  Report Type: 
  Country: US (occurrence: US)
  Receive Date: 20121120
  Receipt Date: 20121120
  Transmission Date: 20130627
  Serious: No
  Sender: FDA-Public Use
  Company Number: US-MYLANLABS-2012S1007601

PATIENT
  Age: 56 Year
  Sex: Male

DRUGS (2)
  1. ALLOPURINOL TABLETS, USP [Suspect]
     Indication: GOUT
     Route: 048
  2. LISINOPRIL [Concomitant]
     Indication: BLOOD PRESSURE INCREASED

REACTIONS (1)
  - Hepatic enzyme increased [Recovered/Resolved]
